FAERS Safety Report 6056512-0 (Version None)
Quarter: 2009Q1

REPORT INFORMATION
  Report Type: 
  Country: None (occurrence: None)
  Receive Date: 20090129
  Receipt Date: 20071228
  Transmission Date: 20090719
  Serious: No
  Sender: FDA-Public Use
  Company Number: A0700768A

PATIENT
  Age: 24 Year
  Sex: Male

DRUGS (4)
  1. COMBIVIR [Suspect]
     Indication: HIV INFECTION
     Dosage: 2TAB TWICE PER DAY
     Route: 048
     Dates: start: 20070601
  2. KALETRA [Concomitant]
  3. VALTREX [Concomitant]
  4. ADDERALL 10 [Concomitant]

REACTIONS (2)
  - MULTIPLE-DRUG RESISTANCE [None]
  - VIRAL LOAD INCREASED [None]
